FAERS Safety Report 19513707 (Version 1)
Quarter: 2021Q3

REPORT INFORMATION
  Report Type: Spontaneous
  Country: US (occurrence: US)
  Receive Date: 20210709
  Receipt Date: 20210709
  Transmission Date: 20211014
  Serious: Yes (Other)
  Sender: FDA-Public Use
  Company Number: US-FRESENIUS KABI-FK202107025

PATIENT
  Age: 72 Year
  Sex: Male
  Weight: 77.1 kg

DRUGS (21)
  1. GABAPENTIN. [Concomitant]
     Active Substance: GABAPENTIN
     Indication: PRODUCT USED FOR UNKNOWN INDICATION
     Dosage: (TAKE 400 MG BY MOUTH ONCE DAILY 2 TABLETS A DAY)
     Route: 065
  2. ATROPINE SULFATE/DIPHENOXYLATE HYDROCHLORIDE [Concomitant]
     Active Substance: ATROPINE SULFATE\DIPHENOXYLATE HYDROCHLORIDE
     Indication: DIARRHOEA
     Dosage: (TAKE 1 TABLET BY MOUTH 4 (FOUR) TIMES DAILY AS NEEDED, 60 TABLET, REFILL: 3)
     Route: 065
  3. FLUOROURACIL INJECTION, USP [Suspect]
     Active Substance: FLUOROURACIL
     Indication: NEUROENDOCRINE CARCINOMA
     Route: 065
     Dates: start: 20210517, end: 20210519
  4. IRINOTECAN [Suspect]
     Active Substance: IRINOTECAN
     Indication: NEUROENDOCRINE CARCINOMA
     Dosage: STATUS: CONTINUING?IRINOTECAN LIPOSOMAL (ONIVYDE)?FREQUENCY: 92 WEEKS
     Route: 042
     Dates: start: 20201026
  5. AMLODIPINE BESILATE [Concomitant]
     Active Substance: AMLODIPINE BESYLATE
     Indication: BLOOD PRESSURE MEASUREMENT
     Dosage: 10 MG TABLET (TAKE ONE TABLET BY MOUTH EVERY DAY)
     Route: 065
  6. APIXABAN [Concomitant]
     Active Substance: APIXABAN
     Indication: PRODUCT USED FOR UNKNOWN INDICATION
     Dosage: 5 MG TAB (TAKE 5 MG BY MOUTH 2 (TWO) TIMES DAILY)
     Route: 065
  7. OMEPRAZOLE. [Concomitant]
     Active Substance: OMEPRAZOLE
     Indication: PRODUCT USED FOR UNKNOWN INDICATION
     Dosage: (TAKE 1 CAPS BY MOUTH ONCE DAILY (PATIENT NOT TAKING REPORTED ON 08/FEB/2021))
     Route: 065
  8. FOLINIC ACID [Suspect]
     Active Substance: LEUCOVORIN
     Indication: COLON CANCER
     Dosage: STATUS: CONTINUING?(NCT03736720)
     Route: 065
     Dates: start: 20201026
  9. FOLINIC ACID [Suspect]
     Active Substance: LEUCOVORIN
     Indication: NEUROENDOCRINE CARCINOMA
  10. CYANOCOBALAMIN. [Concomitant]
     Active Substance: CYANOCOBALAMIN
     Indication: HYPOVITAMINOSIS
     Dosage: (VITAMIN TAKE TWO B?12) 1000 MCG TABLET (TABLETS BY MOUTH EVERY DAY)
     Route: 065
  11. IRINOTECAN [Suspect]
     Active Substance: IRINOTECAN
     Dosage: STATUS: CONTINUING?IRINOTECAN LIPOSOMAL (ONIVYDE)?FREQUENCY: 92 WEEKS
     Route: 042
     Dates: start: 20201026
  12. FOLINIC ACID [Concomitant]
     Active Substance: LEUCOVORIN
     Indication: PRODUCT USED FOR UNKNOWN INDICATION
     Dosage: FOLFOX 12 CYCLES
     Route: 065
     Dates: start: 201902, end: 201908
  13. FLUOROURACIL. [Concomitant]
     Active Substance: FLUOROURACIL
     Indication: PRODUCT USED FOR UNKNOWN INDICATION
     Dosage: FOLFOX 12 CYCLES
     Route: 065
     Dates: start: 201902, end: 201908
  14. CISPLATIN. [Concomitant]
     Active Substance: CISPLATIN
     Indication: PRODUCT USED FOR UNKNOWN INDICATION
     Route: 065
     Dates: start: 202004, end: 202005
  15. ETOPOSIDE. [Concomitant]
     Active Substance: ETOPOSIDE
     Indication: PRODUCT USED FOR UNKNOWN INDICATION
     Route: 065
     Dates: start: 202004, end: 202005
  16. ASCORBIC ACID/BIOTIN/TOCOPHEROL/FOLIC ACID/THIAMINE/PYRIDOXINE/RETINOL/PANTOTHENIC ACID/RIBOFLAVIN/C [Concomitant]
     Indication: PRODUCT USED FOR UNKNOWN INDICATION
     Dosage: (TAKE 1 CAPSULE BY MOUTH ONCE DAILY)
     Route: 065
  17. FLUOROURACIL INJECTION, USP [Suspect]
     Active Substance: FLUOROURACIL
     Indication: COLON CANCER
     Dosage: STATUS: CONTINUING
     Route: 065
     Dates: start: 20201026
  18. OXALIPLATIN. [Concomitant]
     Active Substance: OXALIPLATIN
     Indication: PRODUCT USED FOR UNKNOWN INDICATION
     Dosage: FOLFOX 12 CYCLES
     Route: 065
     Dates: start: 201902, end: 201908
  19. LOPERAMIDE HYDROCHLORIDE. [Concomitant]
     Active Substance: LOPERAMIDE HYDROCHLORIDE
     Indication: DIARRHOEA
     Dosage: 2 MG CAPSULE (TAKE 2 MG BY MOUTH 4 (FOUR) TIMES DAILY AS NEEDED)
     Route: 065
  20. TRAMADOL HYDROCHLORIDE. [Concomitant]
     Active Substance: TRAMADOL HYDROCHLORIDE
     Indication: PAIN
     Dosage: (TAKE 1 TABLET (50 MG TOTAL) BY MOUTH EVERY 8 (EIGHT) HOURS AS NEEDED)
     Route: 065
  21. IRINOTECAN [Suspect]
     Active Substance: IRINOTECAN
     Indication: COLON CANCER
     Dosage: STATUS: CONTINUING?IRINOTECAN LIPOSOMAL (ONIVYDE) ?FREQUENCY: 92 WEEKS
     Route: 042
     Dates: start: 20201026

REACTIONS (2)
  - Subclavian vein thrombosis [Not Recovered/Not Resolved]
  - Superior vena cava syndrome [Not Recovered/Not Resolved]

NARRATIVE: CASE EVENT DATE: 20210529
